FAERS Safety Report 5265933-5 (Version None)
Quarter: 2007Q1

REPORT INFORMATION
  Report Type: 
  Country: None (occurrence: None)
  Receive Date: 20070315
  Receipt Date: 20070307
  Transmission Date: 20070707
  Serious: Yes (Hospitalization)
  Sender: FDA-Public Use
  Company Number: US-JNJFOC-20070302279

PATIENT
  Sex: Female
  Weight: 102.51 kg

DRUGS (5)
  1. DURAGESIC-100 [Suspect]
     Indication: PAIN
     Route: 062
  2. EFFEXOR [Concomitant]
     Indication: DEPRESSION
     Route: 048
  3. NORTRIPTYLINE HCL [Concomitant]
     Indication: SLEEP DISORDER
     Route: 048
  4. NORTRIPTYLINE HCL [Concomitant]
     Indication: DEPRESSION
     Route: 048
  5. ASPIRIN [Concomitant]
     Indication: CARDIAC DISORDER
     Route: 048

REACTIONS (8)
  - AMNESIA [None]
  - BREATH SOUNDS ABNORMAL [None]
  - COUGH [None]
  - FALL [None]
  - HEAD INJURY [None]
  - NERVOUS SYSTEM DISORDER [None]
  - VERTIGO [None]
  - WHEEZING [None]
